FAERS Safety Report 16124654 (Version 2)
Quarter: 2019Q2

REPORT INFORMATION
  Report Type: Report from Study
  Country: ES (occurrence: ES)
  Receive Date: 20190327
  Receipt Date: 20190606
  Transmission Date: 20190711
  Serious: Yes (Hospitalization, Other)
  Sender: FDA-Public Use
  Company Number: ES-JNJFOC-20190331078

PATIENT

DRUGS (4)
  1. MERCAPTOPURINE. [Concomitant]
     Active Substance: MERCAPTOPURINE
     Route: 065
  2. GOLIMUMAB [Suspect]
     Active Substance: GOLIMUMAB
     Indication: COLITIS ULCERATIVE
     Route: 058
  3. AZATHIOPRINE. [Concomitant]
     Active Substance: AZATHIOPRINE
     Route: 065
  4. METHOTREXATE. [Concomitant]
     Active Substance: METHOTREXATE
     Route: 065

REACTIONS (26)
  - Cardiac disorder [Unknown]
  - Influenza [Unknown]
  - Urticaria [Unknown]
  - Pyrexia [Unknown]
  - Pneumonia [Unknown]
  - Leukopenia [Unknown]
  - Tonsillitis [Unknown]
  - Respiratory tract infection [Unknown]
  - Injection site rash [Unknown]
  - Tracheobronchitis [Unknown]
  - Pneumonitis [Unknown]
  - Eczema [Unknown]
  - Headache [Unknown]
  - Arthritis [Unknown]
  - Lupus-like syndrome [Unknown]
  - Rash [Unknown]
  - Treatment failure [Unknown]
  - Gastroenteritis [Unknown]
  - Psoriasis [Unknown]
  - Folliculitis [Unknown]
  - Urinary tract infection [Unknown]
  - Pruritus [Unknown]
  - Myelitis [Unknown]
  - Infectious mononucleosis [Unknown]
  - Bronchospasm [Unknown]
  - Arthropathy [Unknown]
